FAERS Safety Report 23839752 (Version 2)
Quarter: 2024Q2

REPORT INFORMATION
  Report Type: Spontaneous
  Country: US (occurrence: US)
  Receive Date: 20240510
  Receipt Date: 20240624
  Transmission Date: 20240716
  Serious: Yes (Hospitalization)
  Sender: FDA-Public Use
  Company Number: US-JNJFOC-20240510857

PATIENT
  Age: 74 Year
  Sex: Female
  Weight: 78.9 kg

DRUGS (6)
  1. YONDELIS [Suspect]
     Active Substance: TRABECTEDIN
     Indication: Uterine leiomyosarcoma
     Dosage: 1.5MG/M2 (2.81MG) CONTINUOUS INFUSION OVER 24 HOURS
     Route: 042
     Dates: start: 20240307
  2. APIXABAN [Concomitant]
     Active Substance: APIXABAN
     Dates: start: 202308
  3. METHENAMINE [Concomitant]
     Active Substance: METHENAMINE
     Dates: start: 202403
  4. MIRABEGRON [Concomitant]
     Active Substance: MIRABEGRON
     Dates: start: 202405
  5. PANTOPRAZOLE [Concomitant]
     Active Substance: PANTOPRAZOLE
  6. PROCHLORPERAZINE [Concomitant]
     Active Substance: PROCHLORPERAZINE
     Dates: start: 202306

REACTIONS (6)
  - Sepsis [Recovered/Resolved]
  - Urinary tract infection [Recovered/Resolved]
  - Nausea [Recovered/Resolved]
  - Vomiting [Recovered/Resolved]
  - Constipation [Recovered/Resolved]
  - Diarrhoea [Unknown]

NARRATIVE: CASE EVENT DATE: 20240402
